FAERS Safety Report 22627970 (Version 2)
Quarter: 2023Q2

REPORT INFORMATION
  Report Type: Report from Study
  Country: PL (occurrence: PL)
  Receive Date: 20230622
  Receipt Date: 20230630
  Transmission Date: 20230721
  Serious: Yes (Death, Hospitalization)
  Sender: FDA-Public Use
  Company Number: PL-EXELIXIS-XL18423065073

PATIENT

DRUGS (14)
  1. CABOZANTINIB [Suspect]
     Active Substance: CABOZANTINIB
     Indication: Metastatic renal cell carcinoma
     Dosage: 60 MG, QD
     Route: 048
     Dates: start: 20210622
  2. CABOZANTINIB [Suspect]
     Active Substance: CABOZANTINIB
     Dosage: 20 MG
  3. ATEZOLIZUMAB [Suspect]
     Active Substance: ATEZOLIZUMAB
     Indication: Metastatic renal cell carcinoma
     Dosage: 1200 MG, Q3WEEKS
     Route: 041
     Dates: start: 20210622
  4. Amlopin [Concomitant]
     Indication: Hypertension
     Dosage: 5 MG, QD
     Route: 048
     Dates: start: 2010
  5. ACARD [Concomitant]
     Indication: Hypertension
     Dosage: 75 MG, QD
     Route: 048
     Dates: start: 2010
  6. Doxar [Concomitant]
     Indication: Benign prostatic hyperplasia
     Dosage: 1 MG, QD
     Route: 048
     Dates: start: 2015
  7. PROSCAR [Concomitant]
     Active Substance: FINASTERIDE
     Indication: Benign prostatic hyperplasia
     Dosage: 5 MG, QD
     Route: 048
     Dates: start: 2015
  8. ROSUVASTATIN CALCIUM [Concomitant]
     Active Substance: ROSUVASTATIN CALCIUM
     Dosage: 10 MG, QD
     Route: 048
     Dates: start: 2010
  9. ALLOPURINOL [Concomitant]
     Active Substance: ALLOPURINOL
     Indication: Gout
     Dosage: 300 MG, QD
     Route: 048
     Dates: start: 2010
  10. LEVOTHYROXINE SODIUM [Concomitant]
     Active Substance: LEVOTHYROXINE SODIUM
     Indication: Hypothyroidism
     Dosage: 125 MG, QD
     Route: 048
     Dates: start: 20211215
  11. LOPERAMIDE HYDROCHLORIDE [Concomitant]
     Active Substance: LOPERAMIDE HYDROCHLORIDE
     Indication: Diarrhoea
     Dosage: 8 MG, QD
     Route: 048
     Dates: start: 20220104
  12. ETHAMSYLATE [Concomitant]
     Active Substance: ETHAMSYLATE
     Indication: Duodenal ulcer
     Dosage: 1500 MG, QD
     Route: 048
     Dates: start: 20220803
  13. CONTROLOC CONTROL [Concomitant]
     Indication: Duodenal ulcer
     Dosage: 40 MG, QD
     Route: 048
     Dates: start: 20220803
  14. TRANEXAMIC ACID [Concomitant]
     Active Substance: TRANEXAMIC ACID
     Indication: Duodenal ulcer
     Dosage: 1500 MG, QD
     Route: 048
     Dates: start: 20220803

REACTIONS (1)
  - Sepsis [Fatal]

NARRATIVE: CASE EVENT DATE: 20230610
